FAERS Safety Report 20074000 (Version 1)
Quarter: 2021Q4

REPORT INFORMATION
  Report Type: Spontaneous
  Country: US (occurrence: None)
  Receive Date: 20211112
  Receipt Date: 20211112
  Transmission Date: 20220304
  Serious: No
  Sender: FDA-Public Use
  Company Number: None

PATIENT
  Age: 63 Year
  Sex: Female
  Weight: 95.5 kg

DRUGS (2)
  1. CARBOPLATIN [Suspect]
     Active Substance: CARBOPLATIN
     Dates: end: 20211021
  2. TAXOL [Suspect]
     Active Substance: PACLITAXEL
     Dates: end: 20211021

REACTIONS (2)
  - Neutropenia [None]
  - Haemoglobin decreased [None]

NARRATIVE: CASE EVENT DATE: 20211103
